FAERS Safety Report 17771685 (Version 1)
Quarter: 2020Q2

REPORT INFORMATION
  Report Type: Spontaneous
  Country: US (occurrence: US)
  Receive Date: 20200512
  Receipt Date: 20200512
  Transmission Date: 20200714
  Serious: No
  Sender: FDA-Public Use
  Company Number: US-BAUSCH-BL-2020-012247

PATIENT
  Age: 41 Year
  Sex: Male

DRUGS (4)
  1. CLONAZEPAM. [Concomitant]
     Active Substance: CLONAZEPAM
     Indication: PRODUCT USED FOR UNKNOWN INDICATION
  2. CITALOPRAM [Concomitant]
     Active Substance: CITALOPRAM HYDROBROMIDE
     Indication: PRODUCT USED FOR UNKNOWN INDICATION
  3. UCERIS [Suspect]
     Active Substance: BUDESONIDE
     Indication: IRRITABLE BOWEL SYNDROME
     Dosage: 1 METERED DOSE ONCE DAILY BEFORE BEDTIME AS DIRECTED
     Route: 054
     Dates: start: 2019, end: 2019
  4. UCERIS [Suspect]
     Active Substance: BUDESONIDE
     Indication: INFLAMMATORY BOWEL DISEASE
     Dosage: RESTART THE PRODUCT RECENTLY AFTER NOTICING BLOOD IN HIS STOOL
     Route: 054

REACTIONS (8)
  - Patient dissatisfaction with treatment [Unknown]
  - Wrong technique in product usage process [Unknown]
  - Inappropriate schedule of product administration [Unknown]
  - Product quality issue [Unknown]
  - Product use complaint [Unknown]
  - Application site haemorrhage [Unknown]
  - Product prescribing error [Unknown]
  - Application site pain [Unknown]

NARRATIVE: CASE EVENT DATE: 2019
